FAERS Safety Report 8623875-9 (Version None)
Quarter: 2012Q3

REPORT INFORMATION
  Report Type: 
  Country: None (occurrence: None)
  Receive Date: 20120827
  Receipt Date: 20120817
  Transmission Date: 20120928
  Serious: Yes (Other)
  Sender: FDA-Public Use
  Company Number: AT-BAYER-2012-085761

PATIENT
  Age: 51 Year
  Sex: Female

DRUGS (1)
  1. MIRENA [Suspect]
     Indication: MENORRHAGIA
     Dosage: 20 MCG/24HR, CONT
     Route: 015
     Dates: start: 20070101, end: 20120801

REACTIONS (16)
  - HYPOMENORRHOEA [None]
  - SUICIDAL IDEATION [None]
  - MENTAL DISORDER [None]
  - DEVICE EXPULSION [None]
  - VAGINAL HAEMORRHAGE [None]
  - PROCEDURAL PAIN [None]
  - MOOD ALTERED [None]
  - NO ADVERSE EVENT [None]
  - POST PROCEDURAL HAEMORRHAGE [None]
  - CERVIX CARCINOMA STAGE 0 [None]
  - OVARIAN CYST [None]
  - BURNOUT SYNDROME [None]
  - ANHEDONIA [None]
  - DEPRESSION [None]
  - WEIGHT INCREASED [None]
  - AMENORRHOEA [None]
